FAERS Safety Report 7551551-2 (Version None)
Quarter: 2011Q2

REPORT INFORMATION
  Report Type: 
  Country: None (occurrence: None)
  Receive Date: 20110616
  Receipt Date: 20110607
  Transmission Date: 20111010
  Serious: Yes (Other)
  Sender: FDA-Public Use
  Company Number: GB-ASTRAZENECA-2011SE34880

PATIENT
  Age: 70 Year
  Sex: Male

DRUGS (3)
  1. ROSUVASTATIN [Suspect]
     Indication: HYPERCHOLESTEROLAEMIA
     Route: 048
     Dates: start: 20110410, end: 20110427
  2. ENALAPRIL MALEATE [Concomitant]
  3. TAMSULOSIN HCL [Concomitant]

REACTIONS (5)
  - TESTICULAR SWELLING [None]
  - TESTICULAR PAIN [None]
  - HEADACHE [None]
  - LIP BLISTER [None]
  - HYPOAESTHESIA [None]
